FAERS Safety Report 9938646 (Version 1)
Quarter: 2014Q1

REPORT INFORMATION
  Report Type: Spontaneous
  Country: NL (occurrence: NL)
  Receive Date: 20140303
  Receipt Date: 20140303
  Transmission Date: 20141002
  Serious: Yes (Hospitalization)
  Sender: FDA-Public Use
  Company Number: NL-JNJFOC-20140216753

PATIENT
  Age: 71 Year
  Sex: Female

DRUGS (8)
  1. XARELTO [Suspect]
     Indication: THROMBOSIS PROPHYLAXIS
     Route: 048
  2. XARELTO [Suspect]
     Indication: KNEE ARTHROPLASTY
     Route: 048
  3. PARACETAMOL [Concomitant]
     Route: 065
  4. SIMVASTATIN [Concomitant]
     Route: 065
  5. TEMAZEPAM [Concomitant]
     Route: 065
  6. TRAMADOL [Concomitant]
     Route: 065
  7. BISOPROLOL [Concomitant]
     Route: 065
  8. ESOMEPRAZOLE [Concomitant]
     Route: 065

REACTIONS (1)
  - Pulmonary embolism [Unknown]
